FAERS Safety Report 12111191 (Version 1)
Quarter: 2016Q1

REPORT INFORMATION
  Report Type: Spontaneous
  Country: US (occurrence: US)
  Receive Date: 20160224
  Receipt Date: 20160224
  Transmission Date: 20160526
  Serious: Yes (Other)
  Sender: FDA-Public Use
  Company Number: US-LANTHEUS-LMI-2015-00267

PATIENT
  Age: 77 Year
  Sex: Female
  Weight: 65 kg

DRUGS (1)
  1. DEFINITY [Suspect]
     Active Substance: PERFLUTREN
     Indication: ECHOCARDIOGRAM
     Dosage: 1.5 ML DEFINITY DILUTED IN 8.7 ML NORMAL SALINE
     Route: 040
     Dates: start: 20150516, end: 20150516

REACTIONS (4)
  - Discomfort [Recovered/Resolved]
  - Back pain [Recovered/Resolved]
  - Dizziness [Recovered/Resolved]
  - Loss of consciousness [Recovered/Resolved]

NARRATIVE: CASE EVENT DATE: 20150516
